FAERS Safety Report 8266276-8 (Version None)
Quarter: 2012Q2

REPORT INFORMATION
  Report Type: 
  Country: None (occurrence: None)
  Receive Date: 20120406
  Receipt Date: 20120402
  Transmission Date: 20120825
  Serious: Yes (Other)
  Sender: FDA-Public Use
  Company Number: US-AMGEN-USASP2011021445

PATIENT
  Age: 76 Year
  Sex: Male

DRUGS (2)
  1. ANTINEOPLASTIC AGENTS [Concomitant]
     Dosage: UNK
  2. ARANESP [Suspect]
     Indication: ANAEMIA
     Dosage: 300 MUG, Q3WK
     Dates: start: 20110101

REACTIONS (3)
  - SYNCOPE [None]
  - DYSSTASIA [None]
  - DIZZINESS [None]
